FAERS Safety Report 8474711-5 (Version None)
Quarter: 2012Q2

REPORT INFORMATION
  Report Type: 
  Country: None (occurrence: None)
  Receive Date: 20120622
  Receipt Date: 20120612
  Transmission Date: 20120825
  Serious: Yes (Death, Other)
  Sender: FDA-Public Use
  Company Number: DSA_57922_2012

PATIENT
  Age: 67 Year
  Sex: Female

DRUGS (11)
  1. CAPECITABINE [Suspect]
     Indication: GASTRIC CANCER
     Dosage: DF
     Dates: start: 20100728
  2. RED BLOOD CELLS [Concomitant]
  3. ANALGESICS [Concomitant]
  4. ALL OTHER THERAPEUTIC PRODUCTS (ALL OTHER THERAPUETIC PRODUCTS) [Concomitant]
  5. SOLUTIONS FOR PARENTERAL NUTRITION [Concomitant]
  6. LEUCOVORIN CALCIUM [Suspect]
     Indication: GASTRIC CANCER
     Dosage: DF
     Dates: end: 20101111
  7. OXALIPLATIN [Suspect]
     Indication: GASTRIC CANCER
     Dosage: DF
     Dates: start: 20100728
  8. FLUOROURACIL [Suspect]
     Indication: GASTRIC CANCER
     Dosage: DF
     Dates: start: 20100101
  9. IRINOTECAN HCL [Suspect]
     Indication: GASTRIC CANCER
     Dosage: DF
     Dates: end: 20101111
  10. CISPLATIN [Suspect]
     Indication: GASTRIC CANCER
     Dosage: DF
     Dates: start: 20100101
  11. PLASMA [Concomitant]

REACTIONS (5)
  - METASTASES TO LIVER [None]
  - NEOPLASM PROGRESSION [None]
  - GASTRIC CANCER [None]
  - RENAL COLIC [None]
  - FEBRILE NEUTROPENIA [None]
